FAERS Safety Report 13205970 (Version 1)
Quarter: 2017Q1

REPORT INFORMATION
  Report Type: Spontaneous
  Country: MA (occurrence: MA)
  Receive Date: 20170209
  Receipt Date: 20170209
  Transmission Date: 20170428
  Serious: Yes (Other)
  Sender: FDA-Public Use
  Company Number: MA-FRESENIUS KABI-FK201701101

PATIENT
  Age: 43 Year
  Sex: Female

DRUGS (2)
  1. FLUOROURACIL (MANUFACTURER UNKNOWN) [Suspect]
     Active Substance: FLUOROURACIL
     Indication: METAPLASTIC BREAST CARCINOMA
     Route: 040
  2. CISPLATIN. [Suspect]
     Active Substance: CISPLATIN
     Indication: METAPLASTIC BREAST CARCINOMA
     Route: 042

REACTIONS (2)
  - Vomiting [Recovering/Resolving]
  - Febrile neutropenia [Recovering/Resolving]
